FAERS Safety Report 5493346-X (Version None)
Quarter: 2007Q4

REPORT INFORMATION
  Report Type: 
  Country: None (occurrence: None)
  Receive Date: 20071022
  Receipt Date: 20071022
  Transmission Date: 20080405
  Serious: Yes (Death)
  Sender: FDA-Public Use
  Company Number: None

PATIENT
  Age: 71 Year
  Sex: Male
  Weight: 70 kg

DRUGS (1)
  1. PROPOFOL [Suspect]
     Indication: INTUBATION
     Dosage: 5MCG/KG/MIN IV DRIP
     Route: 041
     Dates: start: 20070925, end: 20070925

REACTIONS (1)
  - INCORRECT DRUG ADMINISTRATION RATE [None]
